FAERS Safety Report 17557428 (Version 4)
Quarter: 2020Q2

REPORT INFORMATION
  Report Type: Spontaneous
  Country: NL (occurrence: NL)
  Receive Date: 20200318
  Receipt Date: 20200424
  Transmission Date: 20200713
  Serious: Yes (Life-Threatening, Hospitalization)
  Sender: FDA-Public Use
  Company Number: NL-ASTRAZENECA-2020SE37752

PATIENT
  Sex: Female
  Weight: 55 kg

DRUGS (4)
  1. TRACYDAL [Suspect]
     Active Substance: TRANYLCYPROMINE SULFATE
     Dosage: 250 MG OVERDOSE ONCE/SINGLE ADMINISTRATION
     Route: 065
     Dates: start: 20200229
  2. TRACYDAL [Suspect]
     Active Substance: TRANYLCYPROMINE SULFATE
     Route: 065
  3. OXAZEPAM. [Suspect]
     Active Substance: OXAZEPAM
     Dosage: OVERDOSE
     Route: 065
     Dates: start: 20200228
  4. QUETIAPINE. [Suspect]
     Active Substance: QUETIAPINE
     Dosage: OVERDOSE
     Route: 048
     Dates: start: 20200228

REACTIONS (9)
  - Aggression [Unknown]
  - Contraindicated product administered [Unknown]
  - Visual impairment [Unknown]
  - Panic reaction [Unknown]
  - Hypertensive crisis [Recovering/Resolving]
  - Rash papular [Unknown]
  - Anxiety [Unknown]
  - Agitation [Unknown]
  - Overdose [Unknown]

NARRATIVE: CASE EVENT DATE: 20200228
